FAERS Safety Report 11175754 (Version 3)
Quarter: 2016Q4

REPORT INFORMATION
  Report Type: Spontaneous
  Country: US (occurrence: US)
  Receive Date: 20150609
  Receipt Date: 20161111
  Transmission Date: 20170206
  Serious: No
  Sender: FDA-Public Use
  Company Number: US-GLAXOSMITHKLINE-A0699308A

PATIENT
  Sex: Female
  Weight: 49.89 kg

DRUGS (4)
  1. ADVAIR DISKUS [Suspect]
     Active Substance: FLUTICASONE PROPIONATE\SALMETEROL XINAFOATE
     Indication: PRODUCT USED FOR UNKNOWN INDICATION
     Route: 055
  2. ADVAIR DISKUS [Suspect]
     Active Substance: FLUTICASONE PROPIONATE\SALMETEROL XINAFOATE
     Indication: DYSPNOEA
     Dosage: 1 PUFF(S), BID
     Route: 055
     Dates: start: 20150408
  3. ADVAIR DISKUS [Suspect]
     Active Substance: FLUTICASONE PROPIONATE\SALMETEROL XINAFOATE
     Dosage: 1 PUFF(S), QD
     Route: 055
  4. VENTOLIN HFA [Suspect]
     Active Substance: ALBUTEROL SULFATE
     Indication: WHEEZING
     Dosage: 2 PUFF(S), EVERY 6 HOURS PRN
     Route: 055

REACTIONS (11)
  - Dysphonia [Unknown]
  - Polyuria [Unknown]
  - Drug ineffective [Unknown]
  - Tongue geographic [Unknown]
  - Rhinorrhoea [Unknown]
  - Adverse event [Unknown]
  - Influenza [Unknown]
  - Oral pain [Unknown]
  - Lip swelling [Unknown]
  - Candida infection [Unknown]
  - Dry throat [Unknown]
